FAERS Safety Report 18007006 (Version 1)
Quarter: 2020Q3

REPORT INFORMATION
  Report Type: Spontaneous
  Country: US (occurrence: US)
  Receive Date: 20200710
  Receipt Date: 20200710
  Transmission Date: 20201103
  Serious: Yes (Hospitalization)
  Sender: FDA-Public Use
  Company Number: None

PATIENT
  Age: 72 Year
  Sex: Female
  Weight: 76.5 kg

DRUGS (3)
  1. NEURONTIN [Suspect]
     Active Substance: GABAPENTIN
  2. LETAIRIS [Suspect]
     Active Substance: AMBRISENTAN
     Indication: PULMONARY ARTERIAL HYPERTENSION
     Route: 048
     Dates: start: 20200410
  3. HEPARIN [Suspect]
     Active Substance: HEPARIN SODIUM

REACTIONS (9)
  - Gait disturbance [None]
  - Full blood count decreased [None]
  - Tremor [None]
  - Fall [None]
  - Platelet count decreased [None]
  - Weight fluctuation [None]
  - Fluid retention [None]
  - Dialysis [None]
  - Drug hypersensitivity [None]

NARRATIVE: CASE EVENT DATE: 20200707
